FAERS Safety Report 24569263 (Version 2)
Quarter: 2025Q3

REPORT INFORMATION
  Report Type: Spontaneous
  Country: JP (occurrence: JP)
  Receive Date: 20241031
  Receipt Date: 20250803
  Transmission Date: 20251021
  Serious: Yes (Other)
  Sender: ALEXION PHARMACEUTICALS
  Company Number: JP-ASTRAZENECA-240049934_063610_P_1

PATIENT
  Sex: Female

DRUGS (14)
  1. LOKELMA [Suspect]
     Active Substance: SODIUM ZIRCONIUM CYCLOSILICATE
     Dosage: 5 GRAM, QD
     Dates: start: 20240405, end: 20240424
  2. SPIRONOLACTONE [Suspect]
     Active Substance: SPIRONOLACTONE
     Indication: Cardiac failure congestive
     Dosage: 25 MILLIGRAM, QD
     Dates: start: 20240405, end: 20240424
  3. VONOPRAZAN FUMARATE [Concomitant]
     Active Substance: VONOPRAZAN FUMARATE
     Indication: Hepatic cirrhosis
     Dosage: 20 MILLIGRAM, QD
  4. AZOSEMIDE [Concomitant]
     Active Substance: AZOSEMIDE
     Indication: Hepatic cirrhosis
     Dosage: 60 MILLIGRAM, QD
  5. DAPRODUSTAT [Concomitant]
     Active Substance: DAPRODUSTAT
     Indication: Chronic kidney disease
     Dosage: 4 MILLIGRAM, QD
     Dates: start: 202207
  6. JARDIANCE [Concomitant]
     Active Substance: EMPAGLIFLOZIN
     Indication: Cardiac failure congestive
     Dosage: 10 MILLIGRAM, QD
  7. SAMSCA [Concomitant]
     Active Substance: TOLVAPTAN
     Indication: Cardiac failure congestive
     Dosage: 10 MILLIGRAM, QD
  8. ENTRESTO [Concomitant]
     Active Substance: SACUBITRIL\VALSARTAN
     Indication: Cardiac failure congestive
     Dosage: 50 MILLIGRAM, QD
     Dates: start: 202208
  9. CARVEDILOL [Concomitant]
     Active Substance: CARVEDILOL
     Indication: Cardiac failure congestive
     Dosage: 5 MILLIGRAM, QD
     Dates: start: 202208
  10. SODIUM FERROUS CITRATE [Concomitant]
     Active Substance: SODIUM FERROUS CITRATE
     Indication: Anaemia
     Dosage: 50 MILLIGRAM, QD
     Dates: start: 202303
  11. WARFARIN [Concomitant]
     Active Substance: WARFARIN
     Indication: Cardiac failure congestive
     Dosage: 1.75 MILLIGRAM, QD
     Dates: start: 200805
  12. ZINC [Concomitant]
     Active Substance: ZINC
     Indication: Hepatic cirrhosis
     Dosage: 50 MILLIGRAM, BID
     Dates: start: 200808
  13. RIFAXIMIN [Concomitant]
     Active Substance: RIFAXIMIN
     Indication: Hepatic cirrhosis
     Dosage: 400 MILLIGRAM, TID
     Dates: start: 200806
  14. MAGNESIUM OXIDE [Concomitant]
     Active Substance: MAGNESIUM OXIDE
     Indication: Hepatic cirrhosis
     Dosage: 330 MILLIGRAM, QD

REACTIONS (2)
  - Cellulitis [Recovered/Resolved]
  - Faecaloma [Recovered/Resolved]
